FAERS Safety Report 8477809-0 (Version None)
Quarter: 2012Q2

REPORT INFORMATION
  Report Type: 
  Country: None (occurrence: None)
  Receive Date: 20120622
  Receipt Date: 20120606
  Transmission Date: 20120825
  Serious: Yes (Hospitalization)
  Sender: FDA-Public Use
  Company Number: JPI-P-012632

PATIENT
  Age: 41 Year
  Sex: Male
  Weight: 74.8435 kg

DRUGS (6)
  1. XYREM [Suspect]
     Indication: NARCOLEPSY
     Dosage: 5 GM (2.5 GM, 2 IN 1 D), ORAL 3 GM (3 GM, 1 IN 1 D), ORAL 9 GM (4.5 GM, 2 IN 1 D), ORAL
     Route: 048
     Dates: start: 20100623
  2. XYREM [Suspect]
     Indication: NARCOLEPSY
     Dosage: 5 GM (2.5 GM, 2 IN 1 D), ORAL 3 GM (3 GM, 1 IN 1 D), ORAL 9 GM (4.5 GM, 2 IN 1 D), ORAL
     Route: 048
     Dates: start: 20100601
  3. XYREM [Suspect]
     Indication: NARCOLEPSY
     Dosage: 5 GM (2.5 GM, 2 IN 1 D), ORAL 3 GM (3 GM, 1 IN 1 D), ORAL 9 GM (4.5 GM, 2 IN 1 D), ORAL
     Route: 048
     Dates: start: 20100603, end: 20100601
  4. NORTRIPTYLINE HCL [Concomitant]
  5. LAMOTRIGINE [Concomitant]
  6. METHYLPHENIDATE HCL [Concomitant]

REACTIONS (6)
  - AORTIC ANEURYSM [None]
  - DIZZINESS [None]
  - AORTIC VALVE REPLACEMENT [None]
  - HYPOAESTHESIA [None]
  - GALLOP RHYTHM PRESENT [None]
  - PARAESTHESIA [None]
